FAERS Safety Report 14496770 (Version 3)
Quarter: 2018Q1

REPORT INFORMATION
  Report Type: Spontaneous
  Country: US (occurrence: US)
  Receive Date: 20180207
  Receipt Date: 20180220
  Transmission Date: 20180509
  Serious: Yes (Other)
  Sender: FDA-Public Use
  Company Number: US-PFIZER INC-2018025173

PATIENT
  Age: 74 Year
  Sex: Female

DRUGS (2)
  1. NEULASTA [Concomitant]
     Active Substance: PEGFILGRASTIM
     Indication: PROPHYLAXIS URINARY TRACT INFECTION
     Dosage: UNK
  2. BESPONSA [Suspect]
     Active Substance: INOTUZUMAB OZOGAMICIN
     Indication: ACUTE LYMPHOCYTIC LEUKAEMIA
     Dosage: UNK UNK, WEEKLY
     Dates: start: 20180111

REACTIONS (11)
  - Epistaxis [Unknown]
  - Depression [Unknown]
  - Platelet count decreased [Unknown]
  - Asthenia [Unknown]
  - Peripheral swelling [Unknown]
  - Dizziness [Not Recovered/Not Resolved]
  - Rash macular [Unknown]
  - Fall [Unknown]
  - Haemoglobin decreased [Unknown]
  - Tremor [Unknown]
  - Wound [Recovered/Resolved]
